FAERS Safety Report 8400370-3 (Version None)
Quarter: 2012Q2

REPORT INFORMATION
  Report Type: 
  Country: None (occurrence: None)
  Receive Date: 20120531
  Receipt Date: 20120525
  Transmission Date: 20120825
  Serious: Yes (Hospitalization, Other)
  Sender: FDA-Public Use
  Company Number: DE-ACTELION-A-US2011-58315

PATIENT

DRUGS (1)
  1. VENTAVIS [Suspect]
     Indication: PULMONARY ARTERIAL HYPERTENSION
     Dosage: 5 UG, QID
     Route: 055
     Dates: start: 20091102

REACTIONS (4)
  - HOSPITALISATION [None]
  - GENERAL PHYSICAL HEALTH DETERIORATION [None]
  - GASTRIC DISORDER [None]
  - DYSPNOEA [None]
